FAERS Safety Report 10047446 (Version 2)
Quarter: 2014Q1

REPORT INFORMATION
  Report Type: Report from Study
  Country: JP (occurrence: JP)
  Receive Date: 20140331
  Receipt Date: 20140331
  Transmission Date: 20141002
  Serious: Yes (Death, Other)
  Sender: FDA-Public Use
  Company Number: JP-ASTELLAS-2013JP006336

PATIENT
  Age: 37 Year
  Sex: Female

DRUGS (14)
  1. TACROLIMUS CAPSULES [Suspect]
     Indication: LUPUS NEPHRITIS
     Dosage: 3 MG, UNKNOWN/D
     Route: 048
     Dates: start: 20070209, end: 20130830
  2. RINDERON                           /00008501/ [Concomitant]
     Indication: LUPUS NEPHRITIS
     Dosage: 1.25 MG, UNKNOWN/D
     Route: 048
     Dates: end: 20080810
  3. RINDERON                           /00008501/ [Concomitant]
     Dosage: 1.5 MG, UNKNOWN/D
     Route: 048
     Dates: start: 20080811, end: 20130825
  4. WARFARIN [Concomitant]
     Indication: LUPUS NEPHRITIS
     Dosage: 3 MG, UNKNOWN/D
     Route: 048
     Dates: end: 20130601
  5. NU-LOTAN [Concomitant]
     Dosage: 50 MG, UNKNOWN/D
     Route: 048
     Dates: end: 20130809
  6. MILTAX [Concomitant]
     Dosage: UNK
     Route: 061
     Dates: end: 20081208
  7. GASLON N [Concomitant]
     Indication: PROPHYLAXIS
     Dosage: UNK
     Route: 048
     Dates: end: 20081208
  8. BONALON [Concomitant]
     Indication: OSTEOPOROSIS
     Dosage: 5 MG, UNKNOWN/D
     Route: 048
     Dates: end: 20130830
  9. RINDERON-V [Concomitant]
     Indication: SYSTEMIC LUPUS ERYTHEMATOSUS
     Dosage: UNK
     Route: 061
     Dates: end: 20081208
  10. RINDERON-V [Concomitant]
     Dosage: UNK
     Route: 061
     Dates: end: 20130601
  11. LOXONIN [Concomitant]
     Dosage: UNK
     Route: 061
     Dates: start: 20081208
  12. MUCOSTA [Concomitant]
     Indication: PROPHYLAXIS
     Dosage: 200 MG, UNKNOWN/D
     Route: 048
     Dates: start: 20081208, end: 20130830
  13. FERROMIA                           /00023520/ [Concomitant]
     Indication: PROPHYLAXIS
     Dosage: 50 MG, UNKNOWN/D
     Route: 048
     Dates: start: 20080107, end: 20130601
  14. CLARITH [Concomitant]
     Indication: PNEUMONIA
     Dosage: 200 MG, BID
     Route: 048
     Dates: start: 20110221, end: 20110227

REACTIONS (2)
  - Lymphoma [Fatal]
  - Pneumonia [Recovered/Resolved]
